FAERS Safety Report 5026598-0 (Version None)
Quarter: 2006Q2

REPORT INFORMATION
  Report Type: 
  Country: None (occurrence: None)
  Receive Date: 20060613
  Receipt Date: 20060613
  Transmission Date: 20061013
  Serious: Yes (Hospitalization)
  Sender: FDA-Public Use
  Company Number: None

PATIENT
  Age: 67 Year
  Sex: Male
  Weight: 107.0489 kg

DRUGS (12)
  1. OXANDRIN [Suspect]
     Indication: WEIGHT DECREASED
     Dosage: 10MG BID PO
     Route: 048
     Dates: start: 20060530
  2. OXYCONTIN [Concomitant]
  3. PERCOCET [Concomitant]
  4. DILAUDID [Concomitant]
  5. CARBOPLATIN [Concomitant]
  6. ATENOLOL AND CHLORTHALIDONE [Concomitant]
  7. DARVOCET-N 100 [Concomitant]
  8. VICODIN [Concomitant]
  9. GEMZAR [Concomitant]
  10. AVASTIN [Concomitant]
  11. ALOXI [Concomitant]
  12. DECADRON [Concomitant]

REACTIONS (1)
  - HAEMOPTYSIS [None]
